FAERS Safety Report 26102891 (Version 1)
Quarter: 2025Q4

REPORT INFORMATION
  Report Type: Report from Study
  Country: BR (occurrence: BR)
  Receive Date: 20251128
  Receipt Date: 20251128
  Transmission Date: 20260118
  Serious: Yes (Other)
  Sender: ELI LILLY AND COMPANY
  Company Number: BR-Merck Healthcare KGaA-2025055407

PATIENT
  Age: 69 Year
  Sex: Male

DRUGS (3)
  1. CETUXIMAB [Suspect]
     Active Substance: CETUXIMAB
     Indication: Oropharyngeal cancer
     Dosage: 400 MG/M2, WEEKLY (1/W)
     Route: 042
     Dates: start: 20250813
  2. CETUXIMAB [Suspect]
     Active Substance: CETUXIMAB
     Dosage: TOTAL DOSE: 708 MG
     Route: 042
     Dates: start: 20250924
  3. CETUXIMAB [Suspect]
     Active Substance: CETUXIMAB
     Dosage: TOTAL DOSE: 442.5 MG
     Route: 042
     Dates: start: 20251003

REACTIONS (2)
  - Dysphonia [Not Recovered/Not Resolved]
  - Immunodeficiency [Recovered/Resolved]

NARRATIVE: CASE EVENT DATE: 20251014
